FAERS Safety Report 13933819 (Version 1)
Quarter: 2017Q3

REPORT INFORMATION
  Report Type: Spontaneous
  Country: US (occurrence: US)
  Receive Date: 20170904
  Receipt Date: 20170904
  Transmission Date: 20171127
  Serious: No
  Sender: FDA-Public Use
  Company Number: US-TOLMAR, INC.-2017US000927

PATIENT
  Age: 77 Year
  Sex: Male

DRUGS (9)
  1. DOXYCLINE                          /00055701/ [Concomitant]
     Active Substance: DOXYCYCLINE
  2. TAMULOSIN [Concomitant]
     Active Substance: TAMSULOSIN
  3. DILTIAZEM. [Concomitant]
     Active Substance: DILTIAZEM
  4. ASA [Concomitant]
     Active Substance: ASPIRIN
  5. FLECAINIDE [Concomitant]
     Active Substance: FLECAINIDE
  6. CASODEX [Concomitant]
     Active Substance: BICALUTAMIDE
  7. AZO [Concomitant]
     Active Substance: PHENAZOPYRIDINE HYDROCHLORIDE
  8. PERCOCET                           /00446701/ [Concomitant]
     Active Substance: ACETAMINOPHEN\OXYCODONE HYDROCHLORIDE\OXYCODONE TEREPHTHALATE
  9. ELIGARD [Suspect]
     Active Substance: LEUPROLIDE ACETATE
     Indication: PROSTATE CANCER
     Dosage: 45 MG, 6 MONTH DOSE
     Route: 030
     Dates: start: 20170127

REACTIONS (3)
  - Incorrect route of drug administration [Unknown]
  - Injection site pain [Recovered/Resolved]
  - Incorrect dose administered [Unknown]

NARRATIVE: CASE EVENT DATE: 20170127
